FAERS Safety Report 9632084 (Version 1)
Quarter: 2013Q4

REPORT INFORMATION
  Report Type: Spontaneous
  Country: GB (occurrence: GB)
  Receive Date: 20131018
  Receipt Date: 20131018
  Transmission Date: 20140711
  Serious: Yes (Death, Life-Threatening, Hospitalization)
  Sender: FDA-Public Use
  Company Number: GB-TEVA-437594ISR

PATIENT
  Age: 80 Year
  Sex: Male

DRUGS (8)
  1. MITOXANTRONE [Suspect]
     Indication: ACUTE MYELOID LEUKAEMIA
     Dosage: EACH DOSE GIVEN IN 100ML 0.9% SAILINE, OVER 15 MINUTES. TWO DOSES GIVEN
     Route: 042
     Dates: start: 20120911, end: 20120928
  2. ONDANSETRON [Concomitant]
     Route: 042
     Dates: start: 20120928
  3. LISINOPRIL [Concomitant]
     Dosage: IN VIEW OF DETERIORATING RENAL FUNCTION, LISINOPRIL WAS STOPPED
     Dates: end: 20120910
  4. FELODIPINE [Concomitant]
     Indication: HYPERTENSION
     Dosage: LONG TERM, ONGOING AT TIME OF REACTION
     Dates: end: 20121002
  5. ASPIRIN [Concomitant]
     Indication: SUBDURAL HAEMORRHAGE
     Dates: start: 20120907, end: 20120907
  6. SIMVASTATIN [Concomitant]
     Dates: start: 20120908
  7. ALLOPURINOL [Concomitant]
  8. FLUCLOXACILLIN [Concomitant]
     Indication: INFECTION
     Dosage: CONTINUED FOR 5 DAYS
     Route: 048
     Dates: start: 20120912, end: 20120917

REACTIONS (11)
  - Tumour lysis syndrome [Fatal]
  - Renal failure [Not Recovered/Not Resolved]
  - Dyspnoea [Not Recovered/Not Resolved]
  - Fluid overload [Not Recovered/Not Resolved]
  - Anaemia [Not Recovered/Not Resolved]
  - Pulmonary oedema [Not Recovered/Not Resolved]
  - Local swelling [Not Recovered/Not Resolved]
  - Anuria [Not Recovered/Not Resolved]
  - Atrial fibrillation [Not Recovered/Not Resolved]
  - Hyperkalaemia [Not Recovered/Not Resolved]
  - Acidosis [Not Recovered/Not Resolved]
